FAERS Safety Report 8866057 (Version 3)
Quarter: 2012Q4

REPORT INFORMATION
  Report Type: Report from Study
  Country: CA (occurrence: CA)
  Receive Date: 20121025
  Receipt Date: 20121121
  Transmission Date: 20130627
  Serious: Yes (Hospitalization, Other)
  Sender: FDA-Public Use
  Company Number: CA-ABBOTT-12P-028-0997100-00

PATIENT
  Sex: Female
  Weight: 42 kg

DRUGS (4)
  1. HUMIRA [Suspect]
     Indication: CROHN^S DISEASE
     Route: 058
     Dates: start: 20120923, end: 20120923
  2. HUMIRA [Suspect]
     Dates: end: 20121021
  3. FENTANYL [Concomitant]
     Indication: PRODUCT USED FOR UNKNOWN INDICATION
  4. NORTRIPTYLINE [Concomitant]
     Indication: PRODUCT USED FOR UNKNOWN INDICATION
     Dosage: At bedtime

REACTIONS (3)
  - Intestinal anastomosis complication [Unknown]
  - Obstruction [Unknown]
  - Intestinal resection [Unknown]
